FAERS Safety Report 8258079 (Version 4)
Quarter: 2013Q2

REPORT INFORMATION
  Report Type: Spontaneous
  Country: AR (occurrence: AR)
  Receive Date: 20111122
  Receipt Date: 20130516
  Transmission Date: 20140414
  Serious: Yes (Hospitalization)
  Sender: FDA-Public Use
  Company Number: AR-BIOGENIDEC-2011BI043835

PATIENT
  Sex: Female

DRUGS (11)
  1. AVONEX [Suspect]
     Indication: MULTIPLE SCLEROSIS
     Route: 030
     Dates: start: 200902
  2. LIORESAL (BACLOFEN) [Concomitant]
  3. PLENICA (PREGABALIN) [Concomitant]
  4. VALIUM (DIAZEPAM) [Concomitant]
  5. ALPLAX (ALPRAZOLAM) [Concomitant]
  6. IBUPIRAC (IBUPROFEN) [Concomitant]
  7. TANVIMIL (VITAMINS) [Concomitant]
  8. DITROPAN (OXYBUTYNIN) [Concomitant]
  9. ATENIX (SERTRALINE) [Concomitant]
  10. PEPTAZOL (PANTOPRAZOLE) [Concomitant]
  11. GLATIRAMER [Concomitant]
     Indication: MULTIPLE SCLEROSIS

REACTIONS (6)
  - Ileus [Not Recovered/Not Resolved]
  - Quadriparesis [Unknown]
  - Bone cyst [Unknown]
  - Spinal meningeal cyst [Unknown]
  - Eschar [Unknown]
  - Malaise [Unknown]
